FAERS Safety Report 8964884 (Version 4)
Quarter: 2013Q1

REPORT INFORMATION
  Report Type: Report from Study
  Country: CA (occurrence: CA)
  Receive Date: 20121213
  Receipt Date: 20130109
  Transmission Date: 20140127
  Serious: Yes (Hospitalization, Other)
  Sender: FDA-Public Use
  Company Number: CA-ROCHE-1162281

PATIENT
  Sex: Male
  Weight: 82 kg

DRUGS (7)
  1. HYDROMORPHONE [Suspect]
     Indication: PRODUCT USED FOR UNKNOWN INDICATION
     Route: 048
     Dates: start: 201212
  2. DEXAMETHASONE [Suspect]
     Indication: PRODUCT USED FOR UNKNOWN INDICATION
     Route: 065
  3. LEVETIRACETAM [Concomitant]
     Route: 065
  4. ACEBUTOLOL [Concomitant]
     Route: 065
  5. CITALOPRAM [Concomitant]
     Route: 065
  6. RANITIDINE [Concomitant]
     Route: 065
  7. BEVACIZUMAB [Suspect]
     Indication: GLIOBLASTOMA
     Route: 042
     Dates: start: 20121113, end: 20121211

REACTIONS (33)
  - Hemiparesis [Not Recovered/Not Resolved]
  - Neoplasm [Not Recovered/Not Resolved]
  - Brain oedema [Not Recovered/Not Resolved]
  - Mobility decreased [Not Recovered/Not Resolved]
  - Headache [Not Recovered/Not Resolved]
  - Infusion related reaction [Recovered/Resolved]
  - Hypotension [Recovered/Resolved]
  - Fall [Recovered/Resolved]
  - Fatigue [Not Recovered/Not Resolved]
  - Fatigue [Not Recovered/Not Resolved]
  - Dysphonia [Not Recovered/Not Resolved]
  - Wound [Unknown]
  - Wound infection [Unknown]
  - Impaired healing [Not Recovered/Not Resolved]
  - Sleep disorder [Not Recovered/Not Resolved]
  - Oedema [Not Recovered/Not Resolved]
  - Increased appetite [Not Recovered/Not Resolved]
  - Muscle atrophy [Not Recovered/Not Resolved]
  - Neoplasm progression [Unknown]
  - Mobility decreased [Not Recovered/Not Resolved]
  - Blister [Not Recovered/Not Resolved]
  - Dysphonia [Not Recovered/Not Resolved]
  - Pain in extremity [Not Recovered/Not Resolved]
  - Infection [Recovering/Resolving]
  - Palmar-plantar erythrodysaesthesia syndrome [Not Recovered/Not Resolved]
  - Memory impairment [Unknown]
  - Muscular weakness [Unknown]
  - Asthenia [Not Recovered/Not Resolved]
  - Blister [Recovering/Resolving]
  - Drug ineffective [Unknown]
  - Hemiparesis [Not Recovered/Not Resolved]
  - Wound infection [Not Recovered/Not Resolved]
  - Agitation [Not Recovered/Not Resolved]
